FAERS Safety Report 9956378 (Version 2)
Quarter: 2014Q1

REPORT INFORMATION
  Report Type: Report from Study
  Country: US (occurrence: US)
  Receive Date: 20140304
  Receipt Date: 20140314
  Transmission Date: 20141002
  Serious: Yes (Other)
  Sender: FDA-Public Use
  Company Number: US-AMGEN-USACT2014014992

PATIENT
  Age: 69 Year
  Sex: Female
  Weight: 66.82 kg

DRUGS (31)
  1. PROZAC [Concomitant]
     Dosage: 20 MG, UNK
     Route: 048
     Dates: start: 20120830
  2. AQUAPHOR                           /00298701/ [Concomitant]
     Dosage: UNK
     Route: 061
     Dates: start: 20120202
  3. HYDROCORTISONE [Concomitant]
     Dosage: UNK
     Route: 061
     Dates: start: 20120202
  4. VICODIN [Concomitant]
     Dosage: 500 MG, UNK
     Route: 048
     Dates: start: 20110519
  5. ZOFRAN                             /00955301/ [Concomitant]
     Dosage: 8 MG, UNK
     Route: 048
     Dates: start: 20110505
  6. PHENERGAN                          /00033001/ [Concomitant]
     Dosage: 25 MG, UNK
     Route: 048
     Dates: start: 20110505
  7. EMLA                               /00675501/ [Concomitant]
     Dosage: 2.5 MG, UNK
     Route: 061
     Dates: start: 20110519
  8. LOPRESSOR [Concomitant]
     Dosage: 25 MG, UNK
     Route: 048
     Dates: start: 20110516
  9. CALCIUM [Concomitant]
     Dosage: 500 MG, UNK
     Route: 048
     Dates: start: 20110519
  10. VIT D [Concomitant]
     Dosage: 400-50000  IU, UNK
     Route: 048
     Dates: start: 20110519
  11. ATIVAN [Concomitant]
     Dosage: 0.5 MG, UNK
     Route: 048
  12. AZITHROMYCIN [Concomitant]
     Dosage: 250 MG, QD
     Route: 048
  13. PROBIOTIC                          /06395501/ [Concomitant]
     Dosage: UNK
     Route: 048
  14. CALCIUM MAGNESIUM                  /00591201/ [Concomitant]
     Dosage: UNK
     Route: 048
  15. ANASTROZOLE [Concomitant]
     Dosage: UNK
     Dates: start: 201202
  16. DENOSUMAB [Suspect]
     Indication: BREAST CANCER
     Dosage: 120 MG, UNK
     Route: 058
     Dates: start: 20110519, end: 20120202
  17. NEULASTA [Concomitant]
     Dosage: 6 MG, UNK
     Route: 058
     Dates: start: 20110923
  18. AMBIEN [Concomitant]
     Dosage: 10 MG, UNK
     Route: 048
     Dates: start: 20110819
  19. GUAIFENESIN/CODEINE [Concomitant]
     Dosage: 5 MG, UNK
     Route: 048
     Dates: start: 20110617
  20. DECADRON                           /00016001/ [Concomitant]
     Dosage: 4 MG, UNK
     Route: 048
     Dates: start: 20110811
  21. TESSALON [Concomitant]
     Dosage: 100 MG, UNK
     Route: 048
     Dates: start: 20110819
  22. PRILOSEC                           /00661201/ [Concomitant]
     Dosage: 40 MG, UNK
     Route: 048
     Dates: start: 20110922
  23. AMOXICILLIN [Concomitant]
     Dosage: 875 MUG, UNK
     Route: 048
     Dates: start: 20110109
  24. METHYLPREDNISOLONE [Concomitant]
     Dosage: 4 MG, UNK
     Route: 048
     Dates: start: 20110609
  25. IMODIUM [Concomitant]
     Dosage: 4 UNK, UNK
     Route: 048
     Dates: start: 20110807
  26. ALLEGRA [Concomitant]
     Dosage: 60 UNK, UNK
     Route: 048
     Dates: start: 20110807
  27. CYMBALTA [Concomitant]
     Dosage: 40 MUG, UNK
     Route: 048
     Dates: start: 199012
  28. NYSTATIN [Concomitant]
     Dosage: 1 ML, UNK
     Route: 048
     Dates: start: 20120301
  29. MOTRIN [Concomitant]
     Dosage: 200 MG, UNK
     Route: 048
     Dates: start: 20120517
  30. PRISTIQ [Concomitant]
     Dosage: 50 MG, UNK
     Route: 048
     Dates: start: 20120830
  31. HEPARIN [Concomitant]
     Dosage: UNK
     Route: 055
     Dates: start: 20110621

REACTIONS (1)
  - Osteonecrosis of jaw [Not Recovered/Not Resolved]
